FAERS Safety Report 10675307 (Version 2)
Quarter: 2015Q1

REPORT INFORMATION
  Report Type: Spontaneous
  Country: US (occurrence: US)
  Receive Date: 20141224
  Receipt Date: 20150313
  Transmission Date: 20150720
  Serious: No
  Sender: FDA-Public Use
  Company Number: US-GLAXOSMITHKLINE-US2014GSK041873

PATIENT
  Sex: Female

DRUGS (2)
  1. TAFINLAR [Suspect]
     Active Substance: DABRAFENIB MESYLATE
     Indication: MALIGNANT MELANOMA
     Dosage: 300 MG, QD
     Dates: start: 20140926
  2. TAFINLAR [Suspect]
     Active Substance: DABRAFENIB MESYLATE
     Dosage: UNK

REACTIONS (1)
  - Drug administration error [Unknown]
